FAERS Safety Report 19025109 (Version 1)
Quarter: 2021Q1

REPORT INFORMATION
  Report Type: Other
  Country: DE (occurrence: DE)
  Receive Date: 20210318
  Receipt Date: 20210318
  Transmission Date: 20210420
  Serious: Yes (Other)
  Sender: FDA-Public Use
  Company Number: DE-GLENMARK PHARMACEUTICALS-2021GMK052751

PATIENT

DRUGS (3)
  1. LINEZOLID. [Suspect]
     Active Substance: LINEZOLID
     Indication: OSTEITIS
  2. LINEZOLID. [Suspect]
     Active Substance: LINEZOLID
     Indication: LOWER LIMB FRACTURE
     Dosage: 1200 MILLIGRAM, QD (600MG 2 MAL TAGLICH VORAUSSICHTLICHES ENDDATUM)
     Route: 048
     Dates: start: 20210208
  3. LINEZOLID. [Suspect]
     Active Substance: LINEZOLID
     Indication: OPEN FRACTURE

REACTIONS (6)
  - Ischaemia [Recovered/Resolved]
  - Loss of consciousness [Recovered/Resolved]
  - Palpitations [Recovered/Resolved]
  - Blood pressure increased [Recovered/Resolved]
  - Heart rate decreased [Recovered/Resolved]
  - Heart rate irregular [Recovered/Resolved]

NARRATIVE: CASE EVENT DATE: 20210225
